FAERS Safety Report 11442734 (Version 2)
Quarter: 2015Q4

REPORT INFORMATION
  Report Type: Spontaneous
  Country: IT (occurrence: IT)
  Receive Date: 20150901
  Receipt Date: 20151108
  Transmission Date: 20160304
  Serious: Yes (Other)
  Sender: FDA-Public Use
  Company Number: IT-BRISTOL-MYERS SQUIBB COMPANY-BMS-2015-056009

PATIENT
  Age: 66 Year
  Sex: Male

DRUGS (2)
  1. TORVAST [Concomitant]
     Active Substance: ATORVASTATIN
     Indication: PRODUCT USED FOR UNKNOWN INDICATION
     Dosage: 10 MG, UNK
     Route: 065
  2. COUMADIN [Suspect]
     Active Substance: WARFARIN SODIUM
     Indication: AORTIC VALVE DISEASE
     Dosage: 5 MG, PRN
     Route: 048
     Dates: start: 20090101, end: 20150731

REACTIONS (2)
  - Epilepsy [Recovered/Resolved]
  - Hypocoagulable state [Recovering/Resolving]

NARRATIVE: CASE EVENT DATE: 201503
